FAERS Safety Report 8211536-X (Version None)
Quarter: 2012Q1

REPORT INFORMATION
  Report Type: 
  Country: None (occurrence: None)
  Receive Date: 20120315
  Receipt Date: 20120306
  Transmission Date: 20120608
  Serious: Yes (Hospitalization, Other)
  Sender: FDA-Public Use
  Company Number: US-ASTELLAS-2012US001866

PATIENT
  Sex: Male
  Weight: 105 kg

DRUGS (21)
  1. PERCOCET [Concomitant]
     Indication: ARTHRALGIA
  2. LISINOPRIL [Concomitant]
     Indication: HYPERTENSION
     Dosage: 40 MG, UNKNOWN/D
     Route: 065
     Dates: start: 20090101
  3. NAPROXEN [Concomitant]
     Indication: BACK PAIN
     Dosage: 550 MG, BID
     Route: 065
     Dates: start: 20080101
  4. ERLOTINIB HYDROCHLORIDE [Suspect]
     Indication: NON-SMALL CELL LUNG CANCER
     Dosage: 150 MG, UID/QD
     Route: 048
     Dates: start: 20111221, end: 20120219
  5. ERLOTINIB HYDROCHLORIDE [Suspect]
     Dosage: 150 MG, UID/QD
     Route: 048
     Dates: start: 20120222
  6. BEVACIZUMAB [Suspect]
     Indication: NON-SMALL CELL LUNG CANCER
     Dosage: 1539 MG, Q3W
     Route: 042
     Dates: start: 20110921
  7. CARBOPLATIN [Suspect]
     Indication: NON-SMALL CELL LUNG CANCER
     Dosage: 750 MG, Q3W
     Route: 042
     Dates: start: 20110921, end: 20111130
  8. DURAGESIC-100 [Concomitant]
     Indication: ARTHRALGIA
  9. FENTANYL [Concomitant]
     Indication: PAIN
     Dosage: UNK
     Route: 061
  10. FLEXERIL [Concomitant]
     Indication: BACK PAIN
     Dosage: 10 MG, UID/QD
     Route: 065
     Dates: start: 20080101
  11. CELEXA [Concomitant]
     Indication: DEPRESSION
     Dosage: 20 MG, UNKNOWN/D
     Route: 065
     Dates: start: 20110711
  12. PERCOCET [Concomitant]
     Indication: BACK PAIN
     Dosage: 10 TO 500 MG, PRN
     Route: 065
     Dates: start: 20111214
  13. FLEXANILL [Concomitant]
     Indication: PRODUCT USED FOR UNKNOWN INDICATION
     Dosage: UNK
     Route: 065
  14. DURAGESIC-100 [Concomitant]
     Indication: BACK PAIN
     Dosage: 60 UG, 1 IN 1 HR
     Route: 065
     Dates: start: 20111214
  15. METFORMIN HCL [Concomitant]
     Indication: DIABETES MELLITUS
     Dosage: 500 MG, BID
     Route: 065
     Dates: start: 20110711
  16. WELLBUTRIN [Concomitant]
     Indication: EX-TOBACCO USER
     Dosage: 2 DF, UID/QD
     Route: 065
     Dates: start: 20110912
  17. ZOFRAN [Concomitant]
     Indication: NAUSEA
     Dosage: 8 MG, PRN
     Route: 065
     Dates: start: 20111006
  18. GEMFIBROZIL [Concomitant]
     Indication: HYPERLIPIDAEMIA
     Dosage: UNK
     Route: 065
  19. FLEXAL [Concomitant]
     Indication: BACK PAIN
     Dosage: 10 MG, UNKNOWN/D
     Route: 065
     Dates: start: 20080101
  20. DOCETAXEL [Suspect]
     Indication: NON-SMALL CELL LUNG CANCER
     Dosage: 134 MG, UID/QD
     Route: 042
     Dates: start: 20110921, end: 20111130
  21. PROAIR HFA [Concomitant]
     Indication: DYSPNOEA
     Dosage: 90 UG, PRN
     Route: 065
     Dates: start: 20100101

REACTIONS (9)
  - SINUS CONGESTION [None]
  - BLOOD SODIUM DECREASED [None]
  - NAUSEA [None]
  - INCISION SITE PAIN [None]
  - PNEUMONIA [None]
  - ANAEMIA [None]
  - CHRONIC OBSTRUCTIVE PULMONARY DISEASE [None]
  - DYSPNOEA [None]
  - BRONCHITIS [None]
